FAERS Safety Report 19167883 (Version 1)
Quarter: 2021Q2

REPORT INFORMATION
  Report Type: Spontaneous
  Country: US (occurrence: US)
  Receive Date: 20210422
  Receipt Date: 20210422
  Transmission Date: 20210717
  Serious: Yes (Other)
  Sender: FDA-Public Use
  Company Number: US-DRREDDYS-USA/USA/21/0134596

PATIENT
  Age: 24 Year
  Sex: Female

DRUGS (6)
  1. DIPHENHYDRAMINE HYDROCHLORIDE. [Concomitant]
     Active Substance: DIPHENHYDRAMINE HYDROCHLORIDE
     Indication: URTICARIA PIGMENTOSA
  2. IMATINIB MESYLATE TABLETS [Interacting]
     Active Substance: IMATINIB MESYLATE
     Indication: URTICARIA PIGMENTOSA
     Dates: start: 201403
  3. LORATADINE. [Concomitant]
     Active Substance: LORATADINE
     Indication: URTICARIA PIGMENTOSA
  4. SUMATRIPTAN INJECTION USP, 6 MG/0.5 ML [Suspect]
     Active Substance: SUMATRIPTAN
     Indication: MIGRAINE
  5. DOXEPIN [Concomitant]
     Active Substance: DOXEPIN
     Indication: URTICARIA PIGMENTOSA
  6. PSORALEN [Concomitant]
     Active Substance: PSORALEN
     Indication: URTICARIA PIGMENTOSA

REACTIONS (4)
  - Nausea [Unknown]
  - Drug interaction [Unknown]
  - Migraine [Unknown]
  - Fatigue [Unknown]
